FAERS Safety Report 19871988 (Version 1)
Quarter: 2021Q3

REPORT INFORMATION
  Report Type: Spontaneous
  Country: US (occurrence: US)
  Receive Date: 20210921
  Receipt Date: 20210921
  Transmission Date: 20211014
  Serious: Yes (Hospitalization)
  Sender: FDA-Public Use
  Company Number: None

PATIENT
  Sex: Female
  Weight: 65.8 kg

DRUGS (1)
  1. LIPOSOMAL DOXORUBICIN [Suspect]
     Active Substance: DOXORUBICIN HYDROCHLORIDE

REACTIONS (6)
  - Intestinal fibrosis [None]
  - Intestinal dilatation [None]
  - Intestinal perforation [None]
  - Ovarian cancer recurrent [None]
  - Abdominal adhesions [None]
  - Intestinal obstruction [None]

NARRATIVE: CASE EVENT DATE: 20210824
